FAERS Safety Report 9349559 (Version 3)
Quarter: 2013Q4

REPORT INFORMATION
  Report Type: Spontaneous
  Country: FR (occurrence: FR)
  Receive Date: 20130614
  Receipt Date: 20131017
  Transmission Date: 20140711
  Serious: Yes (Other)
  Sender: FDA-Public Use
  Company Number: FR-GLAXOSMITHKLINE-B0898260A

PATIENT
  Age: 84 Year
  Sex: Male
  Weight: 68 kg

DRUGS (9)
  1. AVODART [Suspect]
     Indication: BENIGN PROSTATIC HYPERPLASIA
     Dosage: .5MG PER DAY
     Route: 048
     Dates: start: 201302, end: 20130605
  2. TAMSULOSINE [Suspect]
     Indication: BENIGN PROSTATIC HYPERPLASIA
     Dosage: .4MG PER DAY
     Route: 048
     Dates: start: 201212
  3. STAGID [Concomitant]
     Indication: DIABETES MELLITUS
     Dosage: 700MG THREE TIMES PER DAY
     Route: 048
     Dates: start: 2004
  4. DIGOXINE [Concomitant]
     Indication: TACHYCARDIA
     Route: 048
     Dates: start: 2009
  5. LASILIX [Concomitant]
     Indication: CARDIAC FAILURE
     Dosage: 40MG PER DAY
     Route: 048
     Dates: start: 2009
  6. HEMIDAONIL [Concomitant]
     Indication: DIABETES MELLITUS
     Route: 048
     Dates: start: 2009
  7. JANUVIA [Concomitant]
     Indication: DIABETES MELLITUS
     Route: 048
     Dates: start: 2009
  8. PREVISCAN [Concomitant]
     Indication: AORTIC VALVE REPLACEMENT
     Route: 048
     Dates: start: 1998
  9. KENZEN [Concomitant]
     Indication: CARDIAC FAILURE
     Route: 048
     Dates: start: 2002

REACTIONS (7)
  - Pulmonary oedema [Not Recovered/Not Resolved]
  - Cardiac failure [Not Recovered/Not Resolved]
  - Oedema peripheral [Not Recovered/Not Resolved]
  - Dyspnoea [Not Recovered/Not Resolved]
  - Rales [Not Recovered/Not Resolved]
  - Malaise [Unknown]
  - Chest pain [Unknown]
